FAERS Safety Report 15659943 (Version 2)
Quarter: 2019Q2

REPORT INFORMATION
  Report Type: Spontaneous
  Country: NL (occurrence: NL)
  Receive Date: 20181127
  Receipt Date: 20190530
  Transmission Date: 20190711
  Serious: Yes (Hospitalization, Other)
  Sender: FDA-Public Use
  Company Number: NL-ACCORD-094087

PATIENT
  Age: 61 Year
  Sex: Female
  Weight: 85 kg

DRUGS (2)
  1. KIOVIG [Concomitant]
     Active Substance: HUMAN IMMUNOGLOBULIN G
     Dosage: 40MG ONCE EVERY THREE WEEKS
  2. ZOLEDRONIC ACID [Suspect]
     Active Substance: ZOLEDRONIC ACID
     Indication: BREAST CANCER
     Dosage: ONCE ONLY 0.05MG / ML
     Dates: start: 20170201

REACTIONS (3)
  - Off label use [Unknown]
  - Condition aggravated [Recovered/Resolved]
  - Chronic inflammatory demyelinating polyradiculoneuropathy [Recovered/Resolved]

NARRATIVE: CASE EVENT DATE: 20170202
